FAERS Safety Report 23026806 (Version 1)
Quarter: 2023Q4

REPORT INFORMATION
  Report Type: Report from Study
  Country: US (occurrence: None)
  Receive Date: 20231004
  Receipt Date: 20231004
  Transmission Date: 20240109
  Serious: Yes (Other)
  Sender: FDA-Public Use
  Company Number: 2023A212846

PATIENT

DRUGS (1)
  1. TAGRISSO [Suspect]
     Active Substance: OSIMERTINIB
     Dosage: 80.0MG UNKNOWN
     Route: 048

REACTIONS (17)
  - Single functional kidney [Unknown]
  - Asplenia [Unknown]
  - Malignant melanoma [Unknown]
  - Lung neoplasm [Unknown]
  - Neoplasm [Unknown]
  - Sunburn [Unknown]
  - Diarrhoea [Unknown]
  - Ageusia [Unknown]
  - Weight decreased [Unknown]
  - Alopecia [Unknown]
  - Decreased appetite [Unknown]
  - Blister [Unknown]
  - Pruritus [Unknown]
  - Arthropod sting [Unknown]
  - Erythema [Unknown]
  - Dehydration [Unknown]
  - Immune system disorder [Unknown]
